FAERS Safety Report 7313461-5 (Version None)
Quarter: 2011Q1

REPORT INFORMATION
  Report Type: 
  Country: None (occurrence: None)
  Receive Date: 20110225
  Receipt Date: 20110218
  Transmission Date: 20110831
  Serious: No
  Sender: FDA-Public Use
  Company Number: US-PFIZER INC-2011010024

PATIENT
  Age: 34 Year
  Sex: Female

DRUGS (3)
  1. ADVIL CONGESTION RELIEF [Suspect]
     Indication: NASAL CONGESTION
  2. MULTI-VITAMINS [Concomitant]
     Dosage: DAILY
  3. ADVIL CONGESTION RELIEF [Suspect]
     Indication: SINUS DISORDER
     Dosage: 1 TABLET, Q4H
     Route: 048
     Dates: start: 20110106

REACTIONS (1)
  - DRUG INEFFECTIVE [None]
